FAERS Safety Report 18658212 (Version 3)
Quarter: 2021Q2

REPORT INFORMATION
  Report Type: Spontaneous
  Country: US (occurrence: US)
  Receive Date: 20201224
  Receipt Date: 20210421
  Transmission Date: 20210717
  Serious: Yes (Hospitalization, Other)
  Sender: FDA-Public Use
  Company Number: US-GILEAD-2020-0509274

PATIENT
  Age: 38 Year
  Sex: Female
  Weight: 90.72 kg

DRUGS (58)
  1. TRUVADA [Suspect]
     Active Substance: EMTRICITABINE\TENOFOVIR DISOPROXIL FUMARATE
     Indication: HIV INFECTION
     Dosage: UNK
     Route: 048
     Dates: start: 2004
  2. EDURANT [Concomitant]
     Active Substance: RILPIVIRINE HYDROCHLORIDE
  3. CIPROFLOXACIN. [Concomitant]
     Active Substance: CIPROFLOXACIN
  4. FERROUS SULFATE. [Concomitant]
     Active Substance: FERROUS SULFATE
  5. HYDROCHLOROTHIAZIDE. [Concomitant]
     Active Substance: HYDROCHLOROTHIAZIDE
  6. METOPROLOL TARTRATE AND HYDROCHLOROTHIAZIDE [Concomitant]
     Active Substance: HYDROCHLOROTHIAZIDE\METOPROLOL TARTRATE
  7. MOMETASONE [Concomitant]
     Active Substance: MOMETASONE
  8. PRAVASTATIN. [Concomitant]
     Active Substance: PRAVASTATIN
  9. ZYVOX [Concomitant]
     Active Substance: LINEZOLID
  10. TRUVADA [Suspect]
     Active Substance: EMTRICITABINE\TENOFOVIR DISOPROXIL FUMARATE
     Dosage: UNK
     Route: 048
     Dates: start: 20061018, end: 20110512
  11. EPIVIR [Concomitant]
     Active Substance: LAMIVUDINE
  12. ZIAGEN [Concomitant]
     Active Substance: ABACAVIR SULFATE
  13. ADALAT CC [Concomitant]
     Active Substance: NIFEDIPINE
  14. BACTRIM [Concomitant]
     Active Substance: SULFAMETHOXAZOLE\TRIMETHOPRIM
  15. CARVEDILOL. [Concomitant]
     Active Substance: CARVEDILOL
  16. CYCLOBENZAPRINE. [Concomitant]
     Active Substance: CYCLOBENZAPRINE
  17. FUROSEMIDE. [Concomitant]
     Active Substance: FUROSEMIDE
  18. METRONIDAZOLE. [Concomitant]
     Active Substance: METRONIDAZOLE
  19. OMEPRAZOLE. [Concomitant]
     Active Substance: OMEPRAZOLE
  20. SINGULAIR [Concomitant]
     Active Substance: MONTELUKAST SODIUM
  21. EPZICOM [Concomitant]
     Active Substance: ABACAVIR SULFATE\LAMIVUDINE
  22. PREZISTA [Concomitant]
     Active Substance: DARUNAVIR ETHANOLATE
  23. ATORVASTATIN [Concomitant]
     Active Substance: ATORVASTATIN
  24. CLEOCIN [CLINDAMYCIN HYDROCHLORIDE] [Concomitant]
     Active Substance: CLINDAMYCIN HYDROCHLORIDE
  25. FAMOTIDINE. [Concomitant]
     Active Substance: FAMOTIDINE
  26. LISINOPRIL. [Concomitant]
     Active Substance: LISINOPRIL
  27. PROMETHAZINE [Concomitant]
     Active Substance: PROMETHAZINE HYDROCHLORIDE
  28. TYLENOL [Concomitant]
     Active Substance: ACETAMINOPHEN
  29. MELOXICAM. [Concomitant]
     Active Substance: MELOXICAM
  30. AMBIEN [Concomitant]
     Active Substance: ZOLPIDEM TARTRATE
  31. BACTROBAN [Concomitant]
     Active Substance: MUPIROCIN\MUPIROCIN CALCIUM
  32. DOXYCYCLINE. [Concomitant]
     Active Substance: DOXYCYCLINE
  33. GABAPENTIN. [Concomitant]
     Active Substance: GABAPENTIN
  34. LUNESTA [Concomitant]
     Active Substance: ESZOPICLONE
  35. MEGESTROL [Concomitant]
     Active Substance: MEGESTROL
  36. ONDANSETRON [Concomitant]
     Active Substance: ONDANSETRON
  37. ORTHO?NOVUM [Concomitant]
     Active Substance: ETHINYL ESTRADIOL\NORETHINDRONE
  38. DARBEPOETIN ALFA [Concomitant]
     Active Substance: DARBEPOETIN ALFA
  39. SEVELAMER [Concomitant]
     Active Substance: SEVELAMER
     Dosage: UNK
     Dates: start: 201808
  40. TIVICAY [Concomitant]
     Active Substance: DOLUTEGRAVIR SODIUM
  41. CRESTOR [Concomitant]
     Active Substance: ROSUVASTATIN CALCIUM
  42. ERGOCALCIFEROL. [Concomitant]
     Active Substance: ERGOCALCIFEROL
  43. VITAMIN D3 [Concomitant]
     Active Substance: CHOLECALCIFEROL
  44. AMLODIPINE [Concomitant]
     Active Substance: AMLODIPINE BESYLATE
  45. ASPIRIN (E.C.) [Concomitant]
     Active Substance: ASPIRIN
  46. ETONOGESTREL [Concomitant]
     Active Substance: ETONOGESTREL
  47. HYDRALAZINE [Concomitant]
     Active Substance: HYDRALAZINE HYDROCHLORIDE
  48. IRON [Concomitant]
     Active Substance: IRON
  49. NORETHINDRONE ACETATE AND ETHINYL ESTRADIOL [Concomitant]
     Active Substance: ETHINYL ESTRADIOL\NORETHINDRONE ACETATE
  50. OXYCODONE [Concomitant]
     Active Substance: OXYCODONE
  51. NORVIR [Concomitant]
     Active Substance: RITONAVIR
  52. REYATAZ [Concomitant]
     Active Substance: ATAZANAVIR SULFATE
  53. DILTIAZEM. [Concomitant]
     Active Substance: DILTIAZEM
  54. DOCUSATE SODIUM. [Concomitant]
     Active Substance: DOCUSATE SODIUM
  55. FLUCONAZOLE. [Concomitant]
     Active Substance: FLUCONAZOLE
  56. LOSARTAN. [Concomitant]
     Active Substance: LOSARTAN
  57. APIXABAN [Concomitant]
     Active Substance: APIXABAN
     Dosage: UNK
     Dates: start: 2018, end: 2019
  58. AMITRIPTYLINE [Concomitant]
     Active Substance: AMITRIPTYLINE
     Dosage: UNK
     Dates: start: 2008, end: 2009

REACTIONS (13)
  - End stage renal disease [Not Recovered/Not Resolved]
  - Device related infection [Recovered/Resolved]
  - Thrombosis [Recovered/Resolved]
  - Anhedonia [Unknown]
  - Emotional distress [Unknown]
  - Anxiety [Unknown]
  - Pain [Unknown]
  - Hyperparathyroidism [Recovered/Resolved]
  - Renal failure [Unknown]
  - Renal impairment [Not Recovered/Not Resolved]
  - Chronic kidney disease [Not Recovered/Not Resolved]
  - Hyperkalaemia [Recovered/Resolved]
  - Depression [Not Recovered/Not Resolved]

NARRATIVE: CASE EVENT DATE: 200705
